FAERS Safety Report 13062095 (Version 1)
Quarter: 2016Q4

REPORT INFORMATION
  Report Type: Spontaneous
  Country: FR (occurrence: FR)
  Receive Date: 20161226
  Receipt Date: 20161226
  Transmission Date: 20170207
  Serious: Yes (Hospitalization, Other)
  Sender: FDA-Public Use
  Company Number: FR-AMGEN-FRASP2016180094

PATIENT
  Age: 63 Year
  Sex: Male

DRUGS (14)
  1. ISOPTINE [Concomitant]
     Active Substance: VERAPAMIL HYDROCHLORIDE
  2. RILMENIDINE [Concomitant]
     Active Substance: RILMENIDINE
  3. LOXEN [Concomitant]
     Active Substance: NICARDIPINE HYDROCHLORIDE
  4. TAHOR [Concomitant]
     Active Substance: ATORVASTATIN CALCIUM
  5. KARDEGIC [Concomitant]
     Active Substance: ASPIRIN LYSINE
  6. SPECIAFOLDINE [Concomitant]
     Active Substance: FOLIC ACID
  7. SIBELIUM [Concomitant]
     Active Substance: FLUNARIZINE
  8. FOSRENOL [Concomitant]
     Active Substance: LANTHANUM CARBONATE
  9. PHOSPHOSORB [Concomitant]
     Active Substance: CALCIUM ACETATE
  10. MIMPARA [Suspect]
     Active Substance: CINACALCET HYDROCHLORIDE
     Indication: PRODUCT USED FOR UNKNOWN INDICATION
     Dosage: 30 MG, QD
     Route: 048
     Dates: start: 201610
  11. SODIUM BICARBONATE. [Concomitant]
     Active Substance: SODIUM BICARBONATE
  12. TRAMADOL. [Concomitant]
     Active Substance: TRAMADOL
  13. BURINEX [Concomitant]
     Active Substance: BUMETANIDE
  14. NOVOMIX [Concomitant]
     Active Substance: INSULIN ASPART

REACTIONS (1)
  - Pulmonary oedema [Recovered/Resolved]

NARRATIVE: CASE EVENT DATE: 20161122
